FAERS Safety Report 5943602-3 (Version None)
Quarter: 2008Q4

REPORT INFORMATION
  Report Type: 
  Country: None (occurrence: None)
  Receive Date: 20081106
  Receipt Date: 20081103
  Transmission Date: 20090506
  Serious: Yes (Hospitalization)
  Sender: FDA-Public Use
  Company Number: US-JNJCH-2008053785

PATIENT
  Age: 58 Year
  Sex: Male

DRUGS (1)
  1. KIRKLAND SIGNATURE 5% [Suspect]
     Indication: ALOPECIA
     Route: 061
     Dates: start: 20081102, end: 20081102

REACTIONS (3)
  - DIZZINESS [None]
  - HYPOAESTHESIA [None]
  - PARAESTHESIA [None]
